FAERS Safety Report 6767430-4 (Version None)
Quarter: 2010Q2

REPORT INFORMATION
  Report Type: 
  Country: None (occurrence: None)
  Receive Date: 20100614
  Receipt Date: 20100531
  Transmission Date: 20101027
  Serious: Yes (Other)
  Sender: FDA-Public Use
  Company Number: PHHY2010MX35518

PATIENT
  Sex: Female

DRUGS (1)
  1. DIOVAN HCT [Suspect]
     Indication: HYPERTENSION
     Dosage: 1 DF, DAILY
     Dates: start: 20100528

REACTIONS (3)
  - ANGINA PECTORIS [None]
  - MUSCLE SPASMS [None]
  - PAIN [None]
